FAERS Safety Report 11345441 (Version 1)
Quarter: 2015Q3

REPORT INFORMATION
  Report Type: Spontaneous
  Country: US (occurrence: None)
  Receive Date: 20150805
  Receipt Date: 20150805
  Transmission Date: 20151125
  Serious: No
  Sender: FDA-Public Use
  Company Number: None

PATIENT
  Age: 76 Year
  Sex: Female

DRUGS (1)
  1. CAPECITABINE 500MG TEVA [Suspect]
     Active Substance: CAPECITABINE
     Indication: BREAST NEOPLASM
     Route: 048
     Dates: start: 20150630, end: 20150804

REACTIONS (7)
  - Fatigue [None]
  - Weight decreased [None]
  - Candida infection [None]
  - Hypophagia [None]
  - Diarrhoea [None]
  - Stomatitis [None]
  - Nausea [None]

NARRATIVE: CASE EVENT DATE: 20150804
